FAERS Safety Report 24861626 (Version 1)
Quarter: 2025Q1

REPORT INFORMATION
  Report Type: Spontaneous
  Country: FR (occurrence: FR)
  Receive Date: 20250120
  Receipt Date: 20250120
  Transmission Date: 20250409
  Serious: Yes (Hospitalization, Other)
  Sender: CHEPLAPHARM
  Company Number: None

PATIENT
  Age: 52 Year
  Sex: Male
  Weight: 55 kg

DRUGS (29)
  1. VALGANCICLOVIR [Suspect]
     Active Substance: VALGANCICLOVIR
     Indication: Antiviral prophylaxis
     Dosage: DAILY DOSE: 900 MILLIGRAM
     Route: 048
     Dates: start: 20220529, end: 202209
  2. VALGANCICLOVIR [Suspect]
     Active Substance: VALGANCICLOVIR
     Indication: Cytomegalovirus infection
     Dosage: DAILY DOSE: 900 MILLIGRAM
     Route: 048
     Dates: start: 20220529, end: 202209
  3. VALGANCICLOVIR [Suspect]
     Active Substance: VALGANCICLOVIR
     Indication: Antiviral prophylaxis
     Dosage: DAILY DOSE: 900 MILLIGRAM
     Route: 048
     Dates: start: 202209, end: 20230526
  4. VALGANCICLOVIR [Suspect]
     Active Substance: VALGANCICLOVIR
     Indication: Cytomegalovirus infection
     Dosage: DAILY DOSE: 900 MILLIGRAM
     Route: 048
     Dates: start: 202209, end: 20230526
  5. VALGANCICLOVIR [Suspect]
     Active Substance: VALGANCICLOVIR
     Indication: Antiviral prophylaxis
     Dosage: DAILY DOSE: 900 MILLIGRAM
     Route: 048
     Dates: start: 20230630, end: 20230912
  6. VALGANCICLOVIR [Suspect]
     Active Substance: VALGANCICLOVIR
     Indication: Cytomegalovirus infection
     Dosage: DAILY DOSE: 900 MILLIGRAM
     Route: 048
     Dates: start: 20230630, end: 20230912
  7. VALGANCICLOVIR [Suspect]
     Active Substance: VALGANCICLOVIR
     Indication: Antiviral prophylaxis
     Dosage: DAILY DOSE: 450 MILLIGRAM
     Route: 048
     Dates: start: 20230913, end: 20231024
  8. VALGANCICLOVIR [Suspect]
     Active Substance: VALGANCICLOVIR
     Indication: Cytomegalovirus infection
     Dosage: DAILY DOSE: 450 MILLIGRAM
     Route: 048
     Dates: start: 20230913, end: 20231024
  9. VALGANCICLOVIR [Suspect]
     Active Substance: VALGANCICLOVIR
     Indication: Antiviral prophylaxis
     Dosage: DAILY DOSE: 900 MILLIGRAM
     Route: 048
     Dates: start: 20231025, end: 20240105
  10. VALGANCICLOVIR [Suspect]
     Active Substance: VALGANCICLOVIR
     Indication: Cytomegalovirus infection
     Dosage: DAILY DOSE: 900 MILLIGRAM
     Route: 048
     Dates: start: 20231025, end: 20240105
  11. VALGANCICLOVIR [Suspect]
     Active Substance: VALGANCICLOVIR
     Indication: Antiviral prophylaxis
     Dosage: DAILY DOSE: 450 MILLIGRAM
     Route: 048
     Dates: start: 20240106
  12. VALGANCICLOVIR [Suspect]
     Active Substance: VALGANCICLOVIR
     Indication: Cytomegalovirus infection
     Dosage: DAILY DOSE: 450 MILLIGRAM
     Route: 048
     Dates: start: 20240106
  13. PROGRAF [Suspect]
     Active Substance: TACROLIMUS
     Indication: Prophylaxis against transplant rejection
     Dosage: DAILY DOSE: 5 MILLIGRAM
     Route: 048
     Dates: start: 20220607, end: 20220914
  14. PROGRAF [Suspect]
     Active Substance: TACROLIMUS
     Indication: Prophylaxis against transplant rejection
     Dosage: DAILY DOSE: 3 MILLIGRAM
     Route: 048
     Dates: start: 20220915, end: 202211
  15. PROGRAF [Suspect]
     Active Substance: TACROLIMUS
     Indication: Prophylaxis against transplant rejection
     Dosage: DAILY DOSE: 1 MILLIGRAM
     Route: 048
     Dates: start: 202211, end: 202301
  16. PROGRAF [Suspect]
     Active Substance: TACROLIMUS
     Indication: Prophylaxis against transplant rejection
     Dosage: DAILY DOSE: 3 MILLIGRAM
     Route: 048
     Dates: start: 202301, end: 202307
  17. PROGRAF [Suspect]
     Active Substance: TACROLIMUS
     Indication: Prophylaxis against transplant rejection
     Dosage: DAILY DOSE: 7 MILLIGRAM
     Route: 048
     Dates: start: 202307, end: 202308
  18. PROGRAF [Suspect]
     Active Substance: TACROLIMUS
     Indication: Prophylaxis against transplant rejection
     Dosage: DAILY DOSE: 2 MILLIGRAM
     Route: 048
     Dates: start: 202308, end: 202310
  19. PROGRAF [Suspect]
     Active Substance: TACROLIMUS
     Indication: Prophylaxis against transplant rejection
     Dosage: DAILY DOSE: 2 MILLIGRAM
     Route: 048
     Dates: start: 202310, end: 202311
  20. PROGRAF [Suspect]
     Active Substance: TACROLIMUS
     Indication: Prophylaxis against transplant rejection
     Dosage: DAILY DOSE: 1 MILLIGRAM
     Route: 048
     Dates: start: 202311, end: 202402
  21. PROGRAF [Suspect]
     Active Substance: TACROLIMUS
     Indication: Prophylaxis against transplant rejection
     Dosage: 1MG AT 10AM AND 0.5MG AT 10PM?DAILY DOSE: 1.5 MILLIGRAM
     Route: 048
     Dates: start: 202402
  22. PREDNISONE [Concomitant]
     Active Substance: PREDNISONE
     Indication: Prophylaxis against transplant rejection
     Route: 048
     Dates: start: 202205
  23. CELLCEPT [Concomitant]
     Active Substance: MYCOPHENOLATE MOFETIL
     Indication: Prophylaxis against transplant rejection
     Route: 048
     Dates: start: 202205, end: 202307
  24. CERTICAN [Concomitant]
     Active Substance: EVEROLIMUS
     Indication: Prophylaxis against transplant rejection
     Dates: start: 202311
  25. MIRCERA [Concomitant]
     Active Substance: METHOXY POLYETHYLENE GLYCOL-EPOETIN BETA
     Indication: Nephrogenic anaemia
     Route: 058
     Dates: start: 20220922
  26. AMBISOME [Concomitant]
     Active Substance: AMPHOTERICIN B
     Indication: Respiratory tract infection fungal
     Route: 055
     Dates: start: 20220607
  27. VORICONAZOLE [Concomitant]
     Active Substance: VORICONAZOLE
     Indication: Fungal infection
     Route: 048
     Dates: start: 20230729
  28. BACTRIM [Concomitant]
     Active Substance: SULFAMETHOXAZOLE\TRIMETHOPRIM
     Route: 048
     Dates: start: 20220607
  29. LANSOPRAZOLE [Concomitant]
     Active Substance: LANSOPRAZOLE
     Route: 048
     Dates: start: 20220607

REACTIONS (5)
  - Neutropenia [Recovering/Resolving]
  - Osteoporotic fracture [Recovered/Resolved]
  - Chronic kidney disease [Not Recovered/Not Resolved]
  - Cytomegalovirus infection [Unknown]
  - Drug ineffective [Unknown]

NARRATIVE: CASE EVENT DATE: 20220701
